FAERS Safety Report 25434347 (Version 1)
Quarter: 2025Q2

REPORT INFORMATION
  Report Type: Spontaneous
  Country: US (occurrence: US)
  Receive Date: 20250613
  Receipt Date: 20250613
  Transmission Date: 20250716
  Serious: No
  Sender: UNIQUE PHARMACEUTICALS
  Company Number: US-UniquePharma-US-2025UPLSPO00079

PATIENT

DRUGS (1)
  1. CIPROFLOXACIN HYDROCHLORIDE [Suspect]
     Active Substance: CIPROFLOXACIN HYDROCHLORIDE
     Indication: HLA-B*27 positive
     Route: 065

REACTIONS (5)
  - Neuralgia [Unknown]
  - Tendon pain [Unknown]
  - Insomnia [Unknown]
  - Anxiety [Unknown]
  - Product use in unapproved indication [Unknown]
